FAERS Safety Report 5710023-8 (Version None)
Quarter: 2008Q2

REPORT INFORMATION
  Report Type: 
  Country: None (occurrence: None)
  Receive Date: 20080418
  Receipt Date: 20080408
  Transmission Date: 20081010
  Serious: Yes (Other)
  Sender: FDA-Public Use
  Company Number: US-ELI_LILLY_AND_COMPANY-US200804001901

PATIENT
  Age: 10 Year
  Sex: Male

DRUGS (3)
  1. STRATTERA [Suspect]
     Indication: ATTENTION DEFICIT/HYPERACTIVITY DISORDER
     Dosage: 18 MG, UNK
     Dates: start: 20080101, end: 20080101
  2. STRATTERA [Suspect]
     Dosage: 25 MG, UNK
     Dates: start: 20080101, end: 20080101
  3. STRATTERA [Suspect]
     Dosage: 43 MG, DAILY (1/D)
     Dates: start: 20080101, end: 20080331

REACTIONS (18)
  - ABDOMINAL PAIN UPPER [None]
  - ABNORMAL BEHAVIOUR [None]
  - AGGRESSION [None]
  - ALTERED STATE OF CONSCIOUSNESS [None]
  - APHASIA [None]
  - CONFUSIONAL STATE [None]
  - CONVULSION [None]
  - DECREASED APPETITE [None]
  - DYSPNOEA [None]
  - EYE ROLLING [None]
  - HEADACHE [None]
  - MEMORY IMPAIRMENT [None]
  - MOOD ALTERED [None]
  - NEGATIVISM [None]
  - PALLOR [None]
  - PALPITATIONS [None]
  - SLEEP TALKING [None]
  - STARING [None]
